FAERS Safety Report 24540984 (Version 1)
Quarter: 2024Q4

REPORT INFORMATION
  Report Type: Spontaneous
  Country: JP (occurrence: JP)
  Receive Date: 20241023
  Receipt Date: 20241023
  Transmission Date: 20250114
  Serious: Yes (Death)
  Sender: ELI LILLY AND COMPANY
  Company Number: JP-ELI_LILLY_AND_COMPANY-JP202410013178

PATIENT
  Age: 76 Year
  Sex: Male
  Weight: 55.8 kg

DRUGS (14)
  1. CYRAMZA [Suspect]
     Active Substance: RAMUCIRUMAB
     Indication: Gastric cancer
     Dosage: 440 MG
     Route: 041
     Dates: start: 20240418, end: 20240822
  2. ABRAXANE [Suspect]
     Active Substance: PACLITAXEL
     Indication: Gastric cancer
     Dosage: 95 MG
     Route: 041
     Dates: start: 20240418, end: 20240822
  3. SODIUM FERROUS CITRATE [Concomitant]
     Active Substance: SODIUM FERROUS CITRATE
  4. VONOPRAZAN FUMARATE [Concomitant]
     Active Substance: VONOPRAZAN FUMARATE
  5. ACETAMINOPHEN [Concomitant]
     Active Substance: ACETAMINOPHEN
  6. LINZESS [Concomitant]
     Active Substance: LINACLOTIDE
  7. MOSAPRIDE [Concomitant]
     Active Substance: MOSAPRIDE
  8. DAYVIGO [Concomitant]
     Active Substance: LEMBOREXANT
  9. ANAMORELIN HYDROCHLORIDE [Concomitant]
     Active Substance: ANAMORELIN HYDROCHLORIDE
  10. MOVICOL [MACROGOL 4000;POTASSIUM CHLORIDE;SOD [Concomitant]
  11. TRAMADOL HYDROCHLORIDE OD [Concomitant]
  12. CYANOCOBALAMIN\PYRIDOXINE HYDROCHLORIDE\THIAMINE [Concomitant]
     Active Substance: CYANOCOBALAMIN\PYRIDOXINE HYDROCHLORIDE\THIAMINE
  13. LULICONAZOLE [Concomitant]
     Active Substance: LULICONAZOLE
  14. LULICONAZOLE [Concomitant]
     Active Substance: LULICONAZOLE

REACTIONS (9)
  - Gait disturbance [Fatal]
  - Dyslalia [Fatal]
  - Balance disorder [Fatal]
  - Dysarthria [Fatal]
  - Brain oedema [Fatal]
  - Hydrocephalus [Fatal]
  - Cerebellar haemorrhage [Fatal]
  - Tumour haemorrhage [Fatal]
  - Haemorrhagic cerebral infarction [Fatal]

NARRATIVE: CASE EVENT DATE: 20240823
